FAERS Safety Report 9755836 (Version 1)
Quarter: 2013Q4

REPORT INFORMATION
  Report Type: Spontaneous
  Country: GB (occurrence: GB)
  Receive Date: 20131213
  Receipt Date: 20131213
  Transmission Date: 20140711
  Serious: Yes (Hospitalization)
  Sender: FDA-Public Use
  Company Number: GB-WATSON-2013-22808

PATIENT
  Age: 41 Year
  Sex: Male
  Weight: 48 kg

DRUGS (1)
  1. OMEPRAZOLE (UNKNOWN) [Suspect]
     Indication: GASTROOESOPHAGEAL REFLUX DISEASE
     Dosage: 160 MG DAILY. PRESCRIBED 80MG (2 X 40MG) PER DAY. ACCIDENTALLY TOOK 160MG.
     Route: 048

REACTIONS (8)
  - Angina pectoris [Recovered/Resolved]
  - Tachycardia [Recovered/Resolved]
  - Dizziness [Recovered/Resolved]
  - Tremor [Recovered/Resolved]
  - Confusional state [Recovered/Resolved]
  - Headache [Recovered/Resolved]
  - Fatigue [Recovered/Resolved]
  - Accidental overdose [Unknown]
